FAERS Safety Report 11009270 (Version 1)
Quarter: 2015Q2

REPORT INFORMATION
  Report Type: Spontaneous
  Country: US (occurrence: None)
  Receive Date: 20150409
  Receipt Date: 20150409
  Transmission Date: 20150821
  Serious: Yes (Other)
  Sender: FDA-Public Use
  Company Number: None

PATIENT
  Age: 72 Year
  Sex: Male

DRUGS (1)
  1. ACTHAR [Suspect]
     Active Substance: CORTICOTROPIN
     Indication: MULTIPLE SCLEROSIS
     Route: 058
     Dates: start: 20150128

REACTIONS (4)
  - Mood swings [None]
  - Ocular discomfort [None]
  - Contusion [None]
  - Swelling [None]

NARRATIVE: CASE EVENT DATE: 20150408
